FAERS Safety Report 9366459 (Version 1)
Quarter: 2013Q2

REPORT INFORMATION
  Report Type: Spontaneous
  Country: ES (occurrence: ES)
  Receive Date: 20130625
  Receipt Date: 20130625
  Transmission Date: 20140414
  Serious: Yes (Hospitalization, Other)
  Sender: FDA-Public Use
  Company Number: ES-PFIZER INC-2013186823

PATIENT
  Age: 81 Year
  Sex: Female

DRUGS (12)
  1. TAZOCEL [Suspect]
     Indication: INFECTED SKIN ULCER
     Dosage: 4 G, 3X/DAY
     Route: 042
     Dates: start: 20121222, end: 20130109
  2. ACETAMINOPHEN [Concomitant]
     Indication: PAIN
     Dosage: 1 G, 3X/DAY
     Route: 048
     Dates: start: 20130109
  3. PANTOPRAZOLE [Concomitant]
     Indication: PROPHYLAXIS AGAINST GASTROINTESTINAL ULCER
     Dosage: 40 MG, 1X/DAY
     Route: 048
     Dates: start: 20130109
  4. ENALAPRIL [Concomitant]
     Indication: HYPERTENSION
     Dosage: 20 MG, 1X/DAY
     Route: 048
     Dates: start: 20130109
  5. BROMAZEPAM [Concomitant]
     Indication: INSOMNIA
     Dosage: 1.5 MG, 1X/DAY
     Route: 048
     Dates: start: 20130109
  6. AMOXICILINA + CLAVULANICO [Concomitant]
     Indication: INFECTED SKIN ULCER
     Dosage: 1 G, 3X/DAY
     Route: 042
     Dates: start: 20121201, end: 20121222
  7. DUPHALAC [Concomitant]
     Indication: CONSTIPATION
     Dosage: 10 G, 3X/DAY
     Route: 048
     Dates: start: 20130109
  8. DUROGESIC [Concomitant]
     Indication: ISCHAEMIC LIMB PAIN
     Dosage: 25 UG EVERY 3 DAYS
     Route: 062
     Dates: start: 20130109
  9. LEVOTHROID [Concomitant]
     Indication: HYPOTHYROIDISM
     Dosage: 50 UG, 1X/DAY
     Route: 048
     Dates: start: 20130109
  10. LYRICA [Concomitant]
     Indication: PAIN
     Dosage: 75 MG, 2X/DAY
     Route: 048
     Dates: start: 20130109
  11. NOLOTIL /SPA/ [Concomitant]
     Indication: PAIN
     Dosage: 575 MG, 3X/DAY
     Route: 048
     Dates: start: 20130109
  12. TRANKIMAZIN [Concomitant]
     Dosage: 0.5 MG, 1X/DAY
     Route: 048
     Dates: start: 20130109

REACTIONS (4)
  - Clostridium difficile infection [Recovered/Resolved]
  - Gastroenteritis [Recovered/Resolved]
  - Hepatomegaly [Not Recovered/Not Resolved]
  - Disease progression [Not Recovered/Not Resolved]
